FAERS Safety Report 6647212-4 (Version None)
Quarter: 2010Q1

REPORT INFORMATION
  Report Type: 
  Country: None (occurrence: None)
  Receive Date: 20100323
  Receipt Date: 20100316
  Transmission Date: 20100710
  Serious: Yes (Other)
  Sender: FDA-Public Use
  Company Number: A0804641A

PATIENT
  Sex: Female

DRUGS (1)
  1. TYKERB [Suspect]
     Dosage: 1250MG PER DAY
     Route: 048
     Dates: start: 20090715, end: 20100316

REACTIONS (5)
  - DRUG INEFFECTIVE [None]
  - METASTASES TO LIVER [None]
  - NAUSEA [None]
  - SPINAL CORD INJURY [None]
  - VOMITING [None]
